FAERS Safety Report 11442439 (Version 1)
Quarter: 2015Q3

REPORT INFORMATION
  Report Type: Spontaneous
  Country: SG (occurrence: SG)
  Receive Date: 20150901
  Receipt Date: 20150901
  Transmission Date: 20151125
  Serious: Yes (Other)
  Sender: FDA-Public Use
  Company Number: SG-BAYER-2015-412725

PATIENT
  Age: 74 Year
  Sex: Male

DRUGS (1)
  1. NIFEDIPINE. [Suspect]
     Active Substance: NIFEDIPINE
     Dosage: UNK

REACTIONS (1)
  - Oedema peripheral [Unknown]

NARRATIVE: CASE EVENT DATE: 20150701
